FAERS Safety Report 16959185 (Version 1)
Quarter: 2019Q4

REPORT INFORMATION
  Report Type: Spontaneous
  Country: US (occurrence: US)
  Receive Date: 20191024
  Receipt Date: 20191024
  Transmission Date: 20200122
  Serious: No
  Sender: FDA-Public Use
  Company Number: NVSC2019US014048

PATIENT
  Sex: Female

DRUGS (3)
  1. EPHEDRINE SULFATE. [Suspect]
     Active Substance: EPHEDRINE SULFATE
     Indication: DYSPNOEA
     Dosage: 70 MG
     Route: 065
  2. PHENYLEPHRINE [Suspect]
     Active Substance: PHENYLEPHRINE HYDROCHLORIDE
     Indication: DYSPNOEA
     Dosage: 2000 UG
     Route: 065
  3. LIDOCAINE. [Suspect]
     Active Substance: LIDOCAINE
     Indication: EPIDURAL ANAESTHESIA
     Dosage: 2%
     Route: 042

REACTIONS (1)
  - Maternal exposure during pregnancy [Unknown]
